FAERS Safety Report 12700919 (Version 2)
Quarter: 2016Q3

REPORT INFORMATION
  Report Type: Spontaneous
  Country: VE (occurrence: VE)
  Receive Date: 20160830
  Receipt Date: 20160904
  Transmission Date: 20161109
  Serious: Yes (Hospitalization, Other)
  Sender: FDA-Public Use
  Company Number: PHHY2015VE110440

PATIENT
  Age: 10 Year
  Sex: Male
  Weight: 30 kg

DRUGS (9)
  1. TRILEPTAL [Suspect]
     Active Substance: OXCARBAZEPINE
     Dosage: UNK UNK, BID
     Route: 048
     Dates: start: 201301
  2. TRILEPTAL [Suspect]
     Active Substance: OXCARBAZEPINE
     Indication: EPILEPSY
     Dosage: 10 CM3, BID
     Route: 048
     Dates: start: 2005
  3. TRILEPTAL [Suspect]
     Active Substance: OXCARBAZEPINE
     Indication: EPILEPSY
     Dosage: 1275 MG, QD (STRENGTH: 300 MG, 4 TABLETS AND AN EXTRA SMALL PIECE)
     Route: 048
  4. TRILEPTAL [Suspect]
     Active Substance: OXCARBAZEPINE
     Dosage: 1200 MG, QD (300 MG)
     Route: 048
  5. TRILEPTAL [Suspect]
     Active Substance: OXCARBAZEPINE
     Dosage: 18 CM3, QD
     Route: 048
     Dates: start: 20050727
  6. TRILEPTAL [Suspect]
     Active Substance: OXCARBAZEPINE
     Dosage: 1200 MG, QD (600 MG)
     Route: 048
  7. TRILEPTAL [Suspect]
     Active Substance: OXCARBAZEPINE
     Dosage: 2 DF (300 MG TWO TABLETS IN THE MORNING AND 300 MG TWO TABLETS AT NIGHT), BID
     Route: 048
     Dates: start: 2013
  8. TRILEPTAL [Suspect]
     Active Substance: OXCARBAZEPINE
     Dosage: 1275 MG, QD (STRENGTH: 600 MG, 2 TABLETS AND AN EXTRA SMALL PIECE)
     Route: 048
  9. TRILEPTAL [Suspect]
     Active Substance: OXCARBAZEPINE
     Dosage: 1350 MG, QD
     Route: 048

REACTIONS (14)
  - Drug dependence [Unknown]
  - Head injury [Recovered/Resolved]
  - Aphasia [Recovered/Resolved]
  - Blood bilirubin increased [Unknown]
  - Seizure [Recovered/Resolved]
  - Seizure [Recovered/Resolved]
  - Skin discolouration [Recovered/Resolved]
  - Wrong technique in product usage process [Unknown]
  - Gait disturbance [Unknown]
  - Fall [Unknown]
  - Blood disorder [Unknown]
  - Decreased immune responsiveness [Unknown]
  - Tremor [Recovered/Resolved]
  - Somnolence [Recovered/Resolved]

NARRATIVE: CASE EVENT DATE: 20150904
